FAERS Safety Report 15948546 (Version 1)
Quarter: 2019Q1

REPORT INFORMATION
  Report Type: Spontaneous
  Country: ES (occurrence: ES)
  Receive Date: 20190212
  Receipt Date: 20190212
  Transmission Date: 20190417
  Serious: Yes (Life-Threatening, Hospitalization)
  Sender: FDA-Public Use
  Company Number: ES-ACCORD-106567

PATIENT
  Age: 60 Year
  Sex: Male
  Weight: 88 kg

DRUGS (1)
  1. DOCETAXEL ACCORD [Suspect]
     Active Substance: DOCETAXEL
     Indication: PANCREATIC CARCINOMA
     Dosage: 136 MG?STRENGTH: 80 MG / 4 ML CONCENTRATE FOR EFG PERFUSION SOLUTION,?1 VIAL OF 4 ML
     Route: 041
     Dates: start: 20180612, end: 20180612

REACTIONS (4)
  - Off label use [Unknown]
  - Flushing [Recovered/Resolved]
  - Syncope [Recovered/Resolved]
  - Headache [Recovered/Resolved]

NARRATIVE: CASE EVENT DATE: 20180612
